FAERS Safety Report 17908268 (Version 1)
Quarter: 2020Q2

REPORT INFORMATION
  Report Type: Spontaneous
  Country: CA (occurrence: CA)
  Receive Date: 20200617
  Receipt Date: 20200617
  Transmission Date: 20200714
  Serious: Yes (Other)
  Sender: FDA-Public Use
  Company Number: CA-SA-2020SA154619

PATIENT

DRUGS (6)
  1. PRALUENT [Suspect]
     Active Substance: ALIROCUMAB
     Indication: BLOOD CHOLESTEROL
     Dosage: 150 MG, Q4W
     Route: 030
  2. EZETIMIBE. [Concomitant]
     Active Substance: EZETIMIBE
  3. TAMSULOSIN CR [Concomitant]
     Active Substance: TAMSULOSIN
     Dosage: UNK (EXTENDED RELEASE TABLET)
  4. ATENOL [Concomitant]
     Active Substance: ATENOLOL
  5. WARFARIN [Concomitant]
     Active Substance: WARFARIN
  6. RAMIPRIL. [Concomitant]
     Active Substance: RAMIPRIL
     Dosage: UNK

REACTIONS (9)
  - Mood altered [Recovered/Resolved]
  - Mental status changes [Recovered/Resolved]
  - Blood cholesterol decreased [Recovered/Resolved]
  - Drug ineffective [Unknown]
  - Leukaemia [Recovered/Resolved]
  - Memory impairment [Recovered/Resolved]
  - Product use issue [Unknown]
  - Inappropriate schedule of product administration [Unknown]
  - Abnormal behaviour [Recovered/Resolved]
